FAERS Safety Report 18559138 (Version 3)
Quarter: 2021Q4

REPORT INFORMATION
  Report Type: Report from Study
  Country: US (occurrence: US)
  Receive Date: 20201130
  Receipt Date: 20211016
  Transmission Date: 20220303
  Serious: Yes (Hospitalization, Other)
  Sender: FDA-Public Use
  Company Number: US-TAKEDA-2020TUS053135

PATIENT
  Sex: Male

DRUGS (2)
  1. HUMAN IMMUNOGLOBULIN G [Suspect]
     Active Substance: HUMAN IMMUNOGLOBULIN G
     Indication: Primary immunodeficiency syndrome
     Route: 058
  2. XOLAIR [Concomitant]
     Active Substance: OMALIZUMAB

REACTIONS (8)
  - Pneumonia [Unknown]
  - Pulmonary fibrosis [Unknown]
  - Asthma [Unknown]
  - Gastrooesophageal reflux disease [Unknown]
  - Tooth disorder [Unknown]
  - Gastroenteritis viral [Unknown]
  - Body height increased [Unknown]
  - Weight increased [Unknown]
